FAERS Safety Report 16863199 (Version 1)
Quarter: 2019Q3

REPORT INFORMATION
  Report Type: Spontaneous
  Country: US (occurrence: US)
  Receive Date: 20190927
  Receipt Date: 20190927
  Transmission Date: 20191005
  Serious: Yes (Life-Threatening, Hospitalization)
  Sender: FDA-Public Use
  Company Number: US-MYLANLABS-2019M1089924

PATIENT
  Age: 24 Year
  Sex: Female

DRUGS (4)
  1. IMMUNOGLOBULIN                     /07494701/ [Suspect]
     Active Substance: IMMUNE GLOBULIN NOS
     Indication: SUSAC^S SYNDROME
     Dosage: INITIAL DOSAGE NOT STATED. EVERY FOUR WEEKS DURING MONTH 4-7 OF HER ILLNESS
     Route: 042
  2. PREDNISONE. [Suspect]
     Active Substance: PREDNISONE
     Indication: SUSAC^S SYNDROME
     Dosage: HIGH DOSE
     Route: 065
  3. CYCLOPHOSPHAMIDE. [Suspect]
     Active Substance: CYCLOPHOSPHAMIDE
     Indication: SUSAC^S SYNDROME
     Dosage: SINGLE PULSE
     Route: 042
  4. MYCOPHENOLATE MOFETIL. [Suspect]
     Active Substance: MYCOPHENOLATE MOFETIL
     Indication: SUSAC^S SYNDROME
     Route: 065

REACTIONS (1)
  - Drug ineffective [Unknown]
